FAERS Safety Report 10522355 (Version 1)
Quarter: 2014Q4

REPORT INFORMATION
  Report Type: Spontaneous
  Country: DE (occurrence: DE)
  Receive Date: 20141016
  Receipt Date: 20141016
  Transmission Date: 20150528
  Serious: Yes (Other)
  Sender: FDA-Public Use
  Company Number: DE-ELI_LILLY_AND_COMPANY-DE201410002911

PATIENT
  Age: 55 Year
  Sex: Female

DRUGS (4)
  1. BROMAZEPAM [Concomitant]
     Active Substance: BROMAZEPAM
     Dosage: 0.75 MG, BID
     Route: 065
  2. BROMAZEPAM [Concomitant]
     Active Substance: BROMAZEPAM
     Indication: PRODUCT USED FOR UNKNOWN INDICATION
     Dosage: 5 MG, TID
     Route: 065
     Dates: start: 20140814
  3. CYMBALTA [Suspect]
     Active Substance: DULOXETINE HYDROCHLORIDE
     Indication: DEPRESSION
  4. CYMBALTA [Suspect]
     Active Substance: DULOXETINE HYDROCHLORIDE
     Indication: ANXIETY
     Dosage: 60 MG, QD
     Route: 048
     Dates: start: 20140814

REACTIONS (2)
  - Tremor [Unknown]
  - Liver injury [Unknown]

NARRATIVE: CASE EVENT DATE: 20140917
